FAERS Safety Report 10072516 (Version 1)
Quarter: 2014Q2

REPORT INFORMATION
  Report Type: Spontaneous
  Country: DK (occurrence: DE)
  Receive Date: 20140411
  Receipt Date: 20140411
  Transmission Date: 20141212
  Serious: Yes (Life-Threatening, Other)
  Sender: FDA-Public Use
  Company Number: DE-FRI-1000066338

PATIENT
  Age: 37 Year
  Sex: Female

DRUGS (1)
  1. CITALOPRAM [Suspect]
     Indication: DEPRESSION
     Route: 048
     Dates: start: 20111114, end: 20120626

REACTIONS (5)
  - Uterine atony [Recovered/Resolved with Sequelae]
  - Cervical incompetence [Unknown]
  - Premature rupture of membranes [Unknown]
  - Intrauterine infection [Unknown]
  - Pregnancy [Unknown]
